FAERS Safety Report 25311749 (Version 1)
Quarter: 2025Q2

REPORT INFORMATION
  Report Type: Spontaneous
  Country: US (occurrence: None)
  Receive Date: 20250513
  Receipt Date: 20250513
  Transmission Date: 20250717
  Serious: Yes (Hospitalization, Other)
  Sender: FDA-CTU
  Company Number: None

PATIENT
  Age: 69 Year
  Sex: Female

DRUGS (1)
  1. PROMACTA [Suspect]
     Active Substance: ELTROMBOPAG OLAMINE
     Indication: Senile osteoporosis
     Dosage: FREQUENCY : DAILY;?

REACTIONS (5)
  - Musculoskeletal stiffness [None]
  - Joint stiffness [None]
  - Liver disorder [None]
  - Diarrhoea [None]
  - Therapy change [None]
